FAERS Safety Report 5968140-3 (Version None)
Quarter: 2008Q4

REPORT INFORMATION
  Report Type: 
  Country: None (occurrence: None)
  Receive Date: 20081110
  Receipt Date: 20070326
  Transmission Date: 20090506
  Serious: No
  Sender: FDA-Public Use
  Company Number: 2007BH003167

PATIENT
  Age: 8 Year
  Sex: Male

DRUGS (3)
  1. FEIBA VH IMMUNO [Suspect]
     Indication: PROPHYLAXIS
     Dosage: 75 IU/KG; ONCE
     Dates: start: 20070309, end: 20070309
  2. FEIBA VH IMMUNO [Suspect]
     Indication: PROPHYLAXIS
     Dosage: 75 IU/KG; ONCE
     Dates: start: 20070313, end: 20070313
  3. FEIBA VH IMMUNO [Suspect]
     Indication: PROPHYLAXIS
     Dosage: 75 IU/KG; ONCE
     Dates: start: 20070316, end: 20070316

REACTIONS (1)
  - INFUSION SITE PAIN [None]
